FAERS Safety Report 12131725 (Version 3)
Quarter: 2016Q2

REPORT INFORMATION
  Report Type: Spontaneous
  Country: US (occurrence: US)
  Receive Date: 20160301
  Receipt Date: 20160502
  Transmission Date: 20160815
  Serious: No
  Sender: FDA-Public Use
  Company Number: US-JNJFOC-20160200956

PATIENT
  Sex: Male
  Weight: 100.7 kg

DRUGS (5)
  1. REMICADE [Suspect]
     Active Substance: INFLIXIMAB
     Indication: PSORIATIC ARTHROPATHY
     Dosage: FOR 4 YEARS
     Route: 042
     Dates: start: 20160120
  2. FOLIC ACID. [Concomitant]
     Active Substance: FOLIC ACID
     Dosage: CHRONIC
     Route: 065
  3. TYLENOL [Concomitant]
     Active Substance: ACETAMINOPHEN
     Route: 065
  4. ADVIL [Concomitant]
     Active Substance: IBUPROFEN
     Route: 065
  5. METHOTREXATE [Concomitant]
     Active Substance: METHOTREXATE
     Indication: PSORIATIC ARTHROPATHY
     Dosage: CHRONIC
     Route: 048

REACTIONS (1)
  - Infusion site haematoma [Recovered/Resolved]
